FAERS Safety Report 25523006 (Version 1)
Quarter: 2025Q3

REPORT INFORMATION
  Report Type: Spontaneous
  Country: JP (occurrence: JP)
  Receive Date: 20250707
  Receipt Date: 20250707
  Transmission Date: 20251021
  Serious: Yes (Hospitalization)
  Sender: Haleon PLC
  Company Number: JP-HALEON-2250526

PATIENT
  Age: 6 Decade
  Sex: Female

DRUGS (2)
  1. NICOTINELL [Suspect]
     Active Substance: NICOTINE
     Indication: Smoking cessation therapy
  2. NICOTINELL [Suspect]
     Active Substance: NICOTINE

REACTIONS (2)
  - Hospitalisation [Unknown]
  - Product use issue [Unknown]
